FAERS Safety Report 5848296-3 (Version None)
Quarter: 2008Q3

REPORT INFORMATION
  Report Type: 
  Country: None (occurrence: None)
  Receive Date: 20080814
  Receipt Date: 20080814
  Transmission Date: 20090109
  Serious: Yes (Other)
  Sender: FDA-Public Use
  Company Number: None

PATIENT
  Age: 69 Year
  Sex: Female
  Weight: 70.3075 kg

DRUGS (12)
  1. RAMIPRIL [Suspect]
     Indication: HYPERTENSION
     Dosage: ONE  DAILY PO
     Route: 048
     Dates: start: 20080727, end: 20080804
  2. LISINOPRIL [Suspect]
     Dosage: ONE DAILY PO
     Route: 048
     Dates: start: 20080805, end: 20080811
  3. SYNTHROID [Concomitant]
  4. LIPITOR [Concomitant]
  5. PREVACID [Concomitant]
  6. HYDROCHLOROTHIAZIDE [Concomitant]
  7. ALLEGRA [Concomitant]
  8. BONIVA [Concomitant]
  9. M.V.I. [Concomitant]
  10. VIT B [Concomitant]
  11. VIT D [Concomitant]
  12. MENEST [Concomitant]

REACTIONS (6)
  - BLOOD PRESSURE INCREASED [None]
  - DISTURBANCE IN ATTENTION [None]
  - DYSPNOEA [None]
  - HEADACHE [None]
  - PARAESTHESIA [None]
  - THERAPEUTIC RESPONSE UNEXPECTED WITH DRUG SUBSTITUTION [None]
